FAERS Safety Report 10957461 (Version 3)
Quarter: 2015Q2

REPORT INFORMATION
  Report Type: Report from Study
  Country: US (occurrence: US)
  Receive Date: 20150326
  Receipt Date: 20150430
  Transmission Date: 20150821
  Serious: Yes (Hospitalization, Other)
  Sender: FDA-Public Use
  Company Number: US-GILEAD-2015-0144476

PATIENT
  Age: 61 Year
  Sex: Female

DRUGS (4)
  1. ADCIRCA [Concomitant]
     Active Substance: TADALAFIL
     Dosage: UNK
  2. TYVASO [Concomitant]
     Active Substance: TREPROSTINIL
     Dosage: UNK
  3. AMBRISENTAN [Suspect]
     Active Substance: AMBRISENTAN
     Indication: PRODUCT USED FOR UNKNOWN INDICATION
     Dosage: 5 MG, QD
     Route: 065
     Dates: start: 20130430
  4. ESBRIET [Concomitant]
     Active Substance: PIRFENIDONE
     Dosage: UNK

REACTIONS (6)
  - Cardiac disorder [Unknown]
  - Oxygen saturation decreased [Unknown]
  - Lung disorder [Unknown]
  - Pneumonia [Unknown]
  - Loss of consciousness [Unknown]
  - Idiopathic pulmonary fibrosis [Unknown]
